FAERS Safety Report 7023592-5 (Version None)
Quarter: 2010Q3

REPORT INFORMATION
  Report Type: 
  Country: None (occurrence: None)
  Receive Date: 20100930
  Receipt Date: 20100930
  Transmission Date: 20110219
  Serious: Yes (Hospitalization, Other)
  Sender: FDA-Public Use
  Company Number: None

PATIENT
  Sex: Female
  Weight: 63.5036 kg

DRUGS (1)
  1. YAZ [Suspect]
     Indication: ACNE
     Dosage: 1 PILL EVERY DAY ORAL
     Route: 048
     Dates: start: 20080901, end: 20090501

REACTIONS (1)
  - CHOLELITHIASIS [None]
